FAERS Safety Report 8590447-4 (Version None)
Quarter: 2012Q3

REPORT INFORMATION
  Report Type: 
  Country: None (occurrence: None)
  Receive Date: 20120813
  Receipt Date: 20120806
  Transmission Date: 20120928
  Serious: Yes (Hospitalization, Other)
  Sender: FDA-Public Use
  Company Number: CA-ABBOTT-12P-028-0965414-00

PATIENT
  Sex: Male

DRUGS (1)
  1. KALETRA [Suspect]
     Indication: HIV INFECTION
     Route: 048
     Dates: start: 20080909

REACTIONS (5)
  - PLEURAL EFFUSION [None]
  - PNEUMONIA [None]
  - WEIGHT DECREASED [None]
  - TUBERCULOSIS [None]
  - BRAIN NEOPLASM [None]
